FAERS Safety Report 5902739-5 (Version None)
Quarter: 2008Q3

REPORT INFORMATION
  Report Type: 
  Country: None (occurrence: None)
  Receive Date: 20080929
  Receipt Date: 20080929
  Transmission Date: 20090109
  Serious: No
  Sender: FDA-Public Use
  Company Number: None

PATIENT
  Sex: Female
  Weight: 90.7194 kg

DRUGS (1)
  1. PAROXETINE HCL EXTENDED RELEASE [Suspect]
     Indication: DEPRESSION
     Dosage: ONE DAILY PO, 2 TO 3 WEEKS
     Route: 048
     Dates: start: 20080801, end: 20080821

REACTIONS (6)
  - FEELING ABNORMAL [None]
  - IMPAIRED WORK ABILITY [None]
  - MALAISE [None]
  - NAUSEA [None]
  - PAIN [None]
  - PHARMACEUTICAL PRODUCT COMPLAINT [None]
